FAERS Safety Report 6063219-2 (Version None)
Quarter: 2009Q1

REPORT INFORMATION
  Report Type: 
  Country: None (occurrence: None)
  Receive Date: 20090203
  Receipt Date: 20090122
  Transmission Date: 20090719
  Serious: Yes (Other)
  Sender: FDA-Public Use
  Company Number: US-PFIZER INC-2009159570

PATIENT
  Sex: Female

DRUGS (2)
  1. LYRICA [Suspect]
     Indication: FIBROMYALGIA
     Dosage: 75 MG, 2X/DAY
     Dates: start: 20080901
  2. LASIX [Suspect]
     Indication: OEDEMA PERIPHERAL
     Dosage: UNK
     Dates: start: 20081101

REACTIONS (4)
  - DIZZINESS [None]
  - OEDEMA PERIPHERAL [None]
  - PALPITATIONS [None]
  - WEIGHT INCREASED [None]
